FAERS Safety Report 16285048 (Version 1)
Quarter: 2019Q2

REPORT INFORMATION
  Report Type: Spontaneous
  Country: PE (occurrence: PE)
  Receive Date: 20190508
  Receipt Date: 20190508
  Transmission Date: 20190711
  Serious: Yes (Other)
  Sender: FDA-Public Use
  Company Number: PE-ROCHE-2314486

PATIENT
  Sex: Female

DRUGS (1)
  1. COTELLIC [Suspect]
     Active Substance: COBIMETINIB
     Indication: MALIGNANT MELANOMA
     Route: 065

REACTIONS (1)
  - Myocardial infarction [Unknown]
